FAERS Safety Report 16469723 (Version 1)
Quarter: 2019Q2

REPORT INFORMATION
  Report Type: Spontaneous
  Country: US (occurrence: US)
  Receive Date: 20190514
  Receipt Date: 20190514
  Transmission Date: 20190711
  Serious: Yes (Other)
  Sender: FDA-Public Use
  Company Number: None

PATIENT
  Age: 65 Year
  Sex: Male
  Weight: 81.65 kg

DRUGS (17)
  1. COD LIVER OIL [Concomitant]
     Active Substance: COD LIVER OIL
  2. MILK THISTLE [Concomitant]
     Active Substance: DIETARY SUPPLEMENT\HERBALS\MILK THISTLE
  3. HAWAIIAN ALACANTAN [Concomitant]
  4. PABA [Concomitant]
     Active Substance: AMINOBENZOIC ACID
  5. UROCIT-KER ISMEO (POTASSIUM CITRATE) [Suspect]
     Active Substance: POTASSIUM CITRATE
     Indication: KIDNEY PERFORATION
     Dosage: ?          QUANTITY:2 DF DOSAGE FORM;?
     Route: 048
  6. LISINOPRIL. [Concomitant]
     Active Substance: LISINOPRIL
  7. VITAMIN D3 [Concomitant]
     Active Substance: CHOLECALCIFEROL
  8. UROCIT-KER ISMEO (POTASSIUM CITRATE) [Suspect]
     Active Substance: POTASSIUM CITRATE
     Indication: NEPHROLITHIASIS
     Dosage: ?          QUANTITY:2 DF DOSAGE FORM;?
     Route: 048
  9. WHEATGRASS [Concomitant]
  10. CORDYCEPS [Concomitant]
     Active Substance: HERBALS
  11. ASPIRIN. [Concomitant]
     Active Substance: ASPIRIN
  12. SOL SILVER [Concomitant]
  13. MSM [Concomitant]
     Active Substance: DIMETHYL SULFONE
  14. POTASSIUM [Concomitant]
     Active Substance: POTASSIUM
  15. FLAXSEED [Concomitant]
     Active Substance: FLAX SEED
  16. GARLIC OIL [Concomitant]
     Active Substance: GARLIC OIL
  17. GOJI [Concomitant]

REACTIONS (1)
  - Palpitations [None]

NARRATIVE: CASE EVENT DATE: 20180620
